FAERS Safety Report 5671289-6 (Version None)
Quarter: 2008Q1

REPORT INFORMATION
  Report Type: 
  Country: None (occurrence: None)
  Receive Date: 20080318
  Receipt Date: 20080306
  Transmission Date: 20080703
  Serious: Yes (Death, Life-Threatening, Hospitalization)
  Sender: FDA-Public Use
  Company Number: JP-BRISTOL-MYERS SQUIBB COMPANY-14113898

PATIENT
  Age: 5 Year
  Sex: Female

DRUGS (5)
  1. ENDOXAN [Suspect]
     Indication: BONE MARROW CONDITIONING REGIMEN
     Dates: start: 20060101, end: 20060101
  2. METHOTREXATE [Suspect]
     Indication: PROPHYLAXIS AGAINST GRAFT VERSUS HOST DISEASE
     Dates: start: 20060101, end: 20060101
  3. BUSULFAN [Suspect]
     Indication: BONE MARROW CONDITIONING REGIMEN
     Dates: start: 20060101, end: 20060101
  4. THIOTEPA [Suspect]
     Indication: BONE MARROW CONDITIONING REGIMEN
     Dates: start: 20060101, end: 20060101
  5. PROGRAF [Suspect]
     Indication: PROPHYLAXIS AGAINST GRAFT VERSUS HOST DISEASE
     Dates: start: 20060101, end: 20060101

REACTIONS (8)
  - ACUTE RESPIRATORY DISTRESS SYNDROME [None]
  - CYTOMEGALOVIRUS ENTERITIS [None]
  - DEATH [None]
  - GRAFT VERSUS HOST DISEASE [None]
  - SEPSIS [None]
  - THROMBOTIC MICROANGIOPATHY [None]
  - TOXIC ENCEPHALOPATHY [None]
  - VENOUS OCCLUSION [None]
